FAERS Safety Report 17393103 (Version 1)
Quarter: 2020Q1

REPORT INFORMATION
  Report Type: Spontaneous
  Country: US (occurrence: US)
  Receive Date: 20200207
  Receipt Date: 20200207
  Transmission Date: 20200409
  Serious: Yes (Hospitalization)
  Sender: FDA-Public Use
  Company Number: US-SUN PHARMACEUTICAL INDUSTRIES LTD-2020R1-235623

PATIENT
  Sex: Female
  Weight: 78.1 kg

DRUGS (6)
  1. CETRIZINE [Concomitant]
     Active Substance: CETIRIZINE HYDROCHLORIDE
     Indication: PRODUCT USED FOR UNKNOWN INDICATION
     Route: 065
  2. AMLODIPINE [Concomitant]
     Active Substance: AMLODIPINE BESYLATE
     Indication: PRODUCT USED FOR UNKNOWN INDICATION
     Dosage: UNK
     Route: 065
  3. SULPHAMETHOXAZOLE/TRIMETHOPRIM [Suspect]
     Active Substance: SULFAMETHOXAZOLE\TRIMETHOPRIM
     Indication: PRODUCT USED FOR UNKNOWN INDICATION
     Dosage: UNK
     Route: 065
  4. RASUVO [Interacting]
     Active Substance: METHOTREXATE SODIUM
     Indication: RHEUMATOID ARTHRITIS
     Dosage: 25 MILLIGRAM, 1/WEEK
     Route: 058
  5. ELIQUIS [Concomitant]
     Active Substance: APIXABAN
     Indication: PRODUCT USED FOR UNKNOWN INDICATION
     Dosage: UNK
     Route: 065
  6. CALCIUM CARBONATE-VITAMIN D3 [Concomitant]
     Indication: PRODUCT USED FOR UNKNOWN INDICATION
     Dosage: UNK
     Route: 065

REACTIONS (27)
  - Cardiac failure congestive [Unknown]
  - Hypertension [Unknown]
  - Diarrhoea [Unknown]
  - Anaemia [Unknown]
  - Fall [Unknown]
  - Mobility decreased [Unknown]
  - Oedema peripheral [Unknown]
  - Rhinovirus infection [Unknown]
  - Hyponatraemia [Unknown]
  - Drug interaction [Unknown]
  - Urinary tract infection fungal [Unknown]
  - Enterovirus infection [Unknown]
  - Chest pain [Unknown]
  - Blood creatine phosphokinase increased [Unknown]
  - Arthralgia [Not Recovered/Not Resolved]
  - Diverticulum [Unknown]
  - Flatulence [Unknown]
  - Somnolence [Unknown]
  - Encephalopathy [Unknown]
  - Weight increased [Unknown]
  - Abdominal distension [Unknown]
  - Mental status changes [Unknown]
  - Cardiac failure acute [Unknown]
  - Cystitis [Unknown]
  - Product dose omission [Unknown]
  - Respiratory alkalosis [Unknown]
  - Lactic acidosis [Unknown]
